FAERS Safety Report 7232851-2 (Version None)
Quarter: 2011Q1

REPORT INFORMATION
  Report Type: 
  Country: None (occurrence: None)
  Receive Date: 20110119
  Receipt Date: 20110106
  Transmission Date: 20110831
  Serious: No
  Sender: FDA-Public Use
  Company Number: US-B.I. PHARMACEUTICALS,INC./RIDGEFIELD-2011-BP-00717BP

PATIENT
  Sex: Male

DRUGS (11)
  1. AMLODIPINE [Concomitant]
     Indication: ATRIAL FIBRILLATION
  2. METOPROLOL [Concomitant]
     Indication: HYPERTENSION
  3. PRADAXA [Suspect]
     Indication: ANTICOAGULANT THERAPY
     Dosage: 300 MG
     Route: 048
     Dates: start: 20101216
  4. FLOMAX [Concomitant]
     Indication: PROSTATIC DISORDER
  5. POTASSIUM [Concomitant]
     Indication: PROPHYLAXIS
  6. HUMALOG [Concomitant]
     Indication: DIABETES MELLITUS
  7. NEXIUM [Concomitant]
     Indication: IMPAIRED GASTRIC EMPTYING
  8. PRADAXA [Suspect]
     Indication: ATRIAL FIBRILLATION
  9. FUROSEMIDE [Concomitant]
     Indication: FLUID RETENTION
  10. LANTUS [Concomitant]
     Indication: DIABETES MELLITUS
  11. RAMIPRIL [Concomitant]
     Indication: HYPERTENSION

REACTIONS (5)
  - ABDOMINAL DISCOMFORT [None]
  - LOCALISED OEDEMA [None]
  - DYSGEUSIA [None]
  - SKIN DISORDER [None]
  - MYALGIA [None]
